FAERS Safety Report 4890728-1 (Version None)
Quarter: 2006Q1

REPORT INFORMATION
  Report Type: 
  Country: None (occurrence: None)
  Receive Date: 20060125
  Receipt Date: 20030501
  Transmission Date: 20060701
  Serious: Yes (Other)
  Sender: FDA-Public Use
  Company Number: US-BRISTOL-MYERS SQUIBB COMPANY-12271516

PATIENT
  Age: 32 Year
  Sex: Female

DRUGS (7)
  1. STADOL [Suspect]
     Indication: MIGRAINE
     Route: 045
     Dates: start: 19930101, end: 19990801
  2. STADOL [Suspect]
     Indication: BACK PAIN
     Route: 045
     Dates: start: 19930101, end: 19990801
  3. PROMETHAZINE [Concomitant]
  4. CARISOPRODOL [Concomitant]
  5. LORAZEPAM [Concomitant]
  6. HYDROCODONE BITARTRATE [Concomitant]
  7. OXYCODONE HCL + ACETAMINOPHEN [Concomitant]

REACTIONS (1)
  - DEPENDENCE [None]
